FAERS Safety Report 23993866 (Version 1)
Quarter: 2024Q2

REPORT INFORMATION
  Report Type: Spontaneous
  Country: US (occurrence: US)
  Receive Date: 20240620
  Receipt Date: 20240620
  Transmission Date: 20240716
  Serious: Yes (Hospitalization, Other)
  Sender: FDA-Public Use
  Company Number: US-SUN PHARMACEUTICAL INDUSTRIES LTD-2024R1-451405

PATIENT
  Age: 10 Year
  Sex: Female

DRUGS (3)
  1. NOREPINEPHRINE [Suspect]
     Active Substance: NOREPINEPHRINE\NOREPINEPHRINE BITARTRATE
     Indication: Hypotension
     Route: 065
  2. EPINEPHRINE [Suspect]
     Active Substance: EPINEPHRINE
     Indication: Hypotension
     Route: 065
  3. MILRINONE [Suspect]
     Active Substance: MILRINONE
     Indication: Hypotension
     Route: 065

REACTIONS (3)
  - Pulseless electrical activity [Unknown]
  - Condition aggravated [Unknown]
  - Ventricular arrhythmia [Unknown]
